FAERS Safety Report 4527774-3 (Version None)
Quarter: 2004Q4

REPORT INFORMATION
  Report Type: 
  Country: None (occurrence: None)
  Receive Date: 20041123
  Receipt Date: 20031117
  Transmission Date: 20050328
  Serious: Yes (Other)
  Sender: FDA-Public Use
  Company Number: ATO-03-0722(0)

PATIENT
  Age: 82 Year
  Sex: Male
  Weight: 74.8435 kg

DRUGS (4)
  1. TRISENOX [Suspect]
     Indication: ACUTE MYELOID LEUKAEMIA
     Dosage: 0.26 MG/KG (20 MG,DAILY),IVI
     Route: 042
     Dates: start: 20031028, end: 20031113
  2. LASIX [Concomitant]
  3. K-DUR [Concomitant]
  4. PREDNISONE [Concomitant]

REACTIONS (6)
  - LUNG INFILTRATION [None]
  - PLEURAL EFFUSION [None]
  - PYREXIA [None]
  - RETINOIC ACID SYNDROME [None]
  - WEIGHT [None]
  - WEIGHT INCREASED [None]
